FAERS Safety Report 7097732-6 (Version None)
Quarter: 2010Q4

REPORT INFORMATION
  Report Type: 
  Country: None (occurrence: None)
  Receive Date: 20101112
  Receipt Date: 20101030
  Transmission Date: 20110411
  Serious: Yes (Hospitalization, Other)
  Sender: FDA-Public Use
  Company Number: IT-PAR PHARMACEUTICAL, INC-2010SCPR001186

PATIENT
  Age: 68 Year
  Sex: Female

DRUGS (2)
  1. HYDROXYUREA [Suspect]
     Indication: ESSENTIAL THROMBOCYTHAEMIA
     Dosage: UNK
     Route: 065
     Dates: start: 19940101
  2. HYDROXYUREA [Suspect]
     Dosage: 5 MG, WEEKLY
     Route: 065
     Dates: start: 20041101

REACTIONS (6)
  - BLOOD ALKALINE PHOSPHATASE INCREASED [None]
  - BLOOD CHOLESTEROL INCREASED [None]
  - BLOOD HOMOCYSTEINE INCREASED [None]
  - BLOOD THYROID STIMULATING HORMONE DECREASED [None]
  - CEREBRAL VENOUS THROMBOSIS [None]
  - MEAN CELL VOLUME INCREASED [None]
